FAERS Safety Report 12653803 (Version 2)
Quarter: 2016Q3

REPORT INFORMATION
  Report Type: Spontaneous
  Country: CN (occurrence: CN)
  Receive Date: 20160816
  Receipt Date: 20160817
  Transmission Date: 20161109
  Serious: No
  Sender: FDA-Public Use
  Company Number: CN-JNJFOC-20160802889

PATIENT
  Age: 1 Year
  Sex: Male
  Weight: 9.5 kg

DRUGS (1)
  1. TYLENOL [Suspect]
     Active Substance: ACETAMINOPHEN
     Indication: TONSILLITIS
     Route: 048
     Dates: start: 20160503, end: 20160503

REACTIONS (4)
  - Product use issue [Recovered/Resolved]
  - Off label use [Recovered/Resolved]
  - Rash generalised [Recovered/Resolved]
  - Pruritus generalised [Recovered/Resolved]

NARRATIVE: CASE EVENT DATE: 20160503
